FAERS Safety Report 6165664-3 (Version None)
Quarter: 2009Q2

REPORT INFORMATION
  Report Type: 
  Country: None (occurrence: None)
  Receive Date: 20090422
  Receipt Date: 20090411
  Transmission Date: 20091009
  Serious: Yes (Hospitalization)
  Sender: FDA-Public Use
  Company Number: 2009-01233

PATIENT
  Sex: Male
  Weight: 115 kg

DRUGS (1)
  1. VELCADE [Suspect]
     Indication: MULTIPLE MYELOMA
     Dosage: 3.1 MG
     Dates: start: 20090227, end: 20090323

REACTIONS (3)
  - ASTHENIA [None]
  - DYSPNOEA [None]
  - HYPOTENSION [None]
